FAERS Safety Report 23513265 (Version 1)
Quarter: 2024Q1

REPORT INFORMATION
  Report Type: Spontaneous
  Country: US (occurrence: US)
  Receive Date: 20240212
  Receipt Date: 20240212
  Transmission Date: 20240410
  Serious: Yes (Other)
  Sender: FDA-Public Use
  Company Number: US-SANDOZ-SDZ2024US012987

PATIENT
  Sex: Male

DRUGS (9)
  1. AZITHROMYCIN [Suspect]
     Active Substance: AZITHROMYCIN
     Indication: Pneumonia necrotising
     Dosage: UNK
     Route: 065
     Dates: start: 202201
  2. AMIKACIN [Suspect]
     Active Substance: AMIKACIN
     Indication: Product used for unknown indication
     Dosage: UNK
     Route: 042
     Dates: start: 202308
  3. AMIKACIN [Suspect]
     Active Substance: AMIKACIN
     Indication: Pneumonia necrotising
     Route: 065
  4. AMIKACIN [Suspect]
     Active Substance: AMIKACIN
     Indication: Pneumonia necrotising
     Route: 065
  5. ETHAMBUTOL [Suspect]
     Active Substance: ETHAMBUTOL HYDROCHLORIDE
     Indication: Pneumonia necrotising
     Route: 065
  6. ETHAMBUTOL [Suspect]
     Active Substance: ETHAMBUTOL HYDROCHLORIDE
     Indication: Pneumonia necrotising
     Route: 065
  7. RIFABUTIN [Suspect]
     Active Substance: RIFABUTIN
     Indication: Pneumonia necrotising
     Dosage: UNK
     Route: 065
     Dates: start: 202201
  8. CLARITHROMYCIN [Concomitant]
     Active Substance: CLARITHROMYCIN
     Indication: Mycobacterium avium complex infection
     Route: 065
  9. CLARITHROMYCIN [Concomitant]
     Active Substance: CLARITHROMYCIN
     Indication: Mycobacterium avium complex infection
     Route: 065

REACTIONS (4)
  - Pulmonary cavitation [Unknown]
  - Bronchopleural fistula [Unknown]
  - Empyema [Unknown]
  - Lung neoplasm malignant [Unknown]
